FAERS Safety Report 5985051-8 (Version None)
Quarter: 2008Q4

REPORT INFORMATION
  Report Type: 
  Country: None (occurrence: None)
  Receive Date: 20081208
  Receipt Date: 20080605
  Transmission Date: 20090506
  Serious: Yes (Other)
  Sender: FDA-Public Use
  Company Number: US-AMGEN-QUU285026

PATIENT
  Sex: Female

DRUGS (2)
  1. ENBREL [Suspect]
     Indication: RHEUMATOID ARTHRITIS
     Route: 058
     Dates: start: 20050101
  2. REMICADE [Concomitant]

REACTIONS (9)
  - ANAPHYLACTIC REACTION [None]
  - CYSTITIS [None]
  - ENDODONTIC PROCEDURE [None]
  - FIBROMYALGIA [None]
  - RHEUMATOID ARTHRITIS [None]
  - SINUSITIS [None]
  - TOOTH ABSCESS [None]
  - TOOTH FRACTURE [None]
  - TOOTH INFECTION [None]
